FAERS Safety Report 15209092 (Version 1)
Quarter: 2018Q3

REPORT INFORMATION
  Report Type: Spontaneous
  Country: US (occurrence: US)
  Receive Date: 20180727
  Receipt Date: 20180727
  Transmission Date: 20181010
  Serious: Yes (Life-Threatening)
  Sender: FDA-Public Use
  Company Number: US-FRESENIUS KABI-FK201808220

PATIENT
  Age: 62 Year
  Sex: Male

DRUGS (3)
  1. FLUCONAZOLE (MANUFACTURER UNKNOWN) [Suspect]
     Active Substance: FLUCONAZOLE
     Indication: CANDIDA INFECTION
  2. AMIODARONE HCL (MANUFACTURER UNKNOWN) [Suspect]
     Active Substance: AMIODARONE HYDROCHLORIDE
     Indication: ATRIAL FIBRILLATION
     Route: 065
  3. FLUCONAZOLE (MANUFACTURER UNKNOWN) [Suspect]
     Active Substance: FLUCONAZOLE
     Indication: FUNGAEMIA
     Route: 065

REACTIONS (4)
  - Pulmonary alveolar haemorrhage [Recovering/Resolving]
  - Drug interaction [Recovering/Resolving]
  - Acute respiratory distress syndrome [Recovering/Resolving]
  - Product use in unapproved indication [Recovering/Resolving]
